FAERS Safety Report 16709201 (Version 6)
Quarter: 2020Q1

REPORT INFORMATION
  Report Type: Report from Study
  Country: BR (occurrence: BR)
  Receive Date: 20190816
  Receipt Date: 20200122
  Transmission Date: 20200409
  Serious: Yes (Hospitalization, Other)
  Sender: FDA-Public Use
  Company Number: PHHY2019BR187797

PATIENT
  Age: 32 Year
  Sex: Female

DRUGS (2)
  1. COSENTYX [Suspect]
     Active Substance: SECUKINUMAB
     Indication: ANKYLOSING SPONDYLITIS
     Dosage: UNK
     Route: 065
     Dates: start: 20180924
  2. COSENTYX [Suspect]
     Active Substance: SECUKINUMAB
     Dosage: UNK
     Route: 065
     Dates: start: 20190809

REACTIONS (14)
  - Pharyngitis [Unknown]
  - Oropharyngeal pain [Recovering/Resolving]
  - Influenza [Recovering/Resolving]
  - Rhinorrhoea [Recovering/Resolving]
  - Respiratory tract infection [Unknown]
  - Sinusitis [Unknown]
  - Therapeutic product effect incomplete [Recovering/Resolving]
  - Nail infection [Recovering/Resolving]
  - Inflammation [Unknown]
  - Haemorrhagic ovarian cyst [Unknown]
  - Infection [Recovering/Resolving]
  - Decreased immune responsiveness [Unknown]
  - Ear infection [Unknown]
  - Viral infection [Unknown]

NARRATIVE: CASE EVENT DATE: 201909
